FAERS Safety Report 6737325-0 (Version None)
Quarter: 2010Q2

REPORT INFORMATION
  Report Type: 
  Country: None (occurrence: None)
  Receive Date: 20100524
  Receipt Date: 20100513
  Transmission Date: 20101027
  Serious: Yes (Hospitalization)
  Sender: FDA-Public Use
  Company Number: JP-SHIRE-SPV1-2010-00200

PATIENT

DRUGS (14)
  1. LANTHANUM CARBONATE [Suspect]
     Indication: HYPERPHOSPHATAEMIA
     Dates: start: 20090428, end: 20090730
  2. LANTHANUM CARBONATE [Suspect]
     Dates: start: 20090413, end: 20090427
  3. MAXIPIME [Suspect]
     Indication: DRUG USE FOR UNKNOWN INDICATION
     Route: 042
     Dates: start: 20090713, end: 20090722
  4. CALCIUM CARBONATE [Concomitant]
     Indication: HYPERPHOSPHATAEMIA
     Dosage: 7500 MG, UNK
     Route: 048
  5. CALCIUM CARBONATE [Concomitant]
     Dosage: 6000 MG, UNK
     Route: 048
     Dates: start: 20090413, end: 20090512
  6. CALCIUM CARBONATE [Concomitant]
     Dosage: 4500 MG, UNK
     Route: 048
     Dates: start: 20090513, end: 20090613
  7. CALCIUM CARBONATE [Concomitant]
     Dosage: 3000 MG, UNK
     Route: 048
     Dates: start: 20090614, end: 20090730
  8. ROCALTROL [Concomitant]
     Dosage: 1 UG, UNK
     Route: 048
     Dates: start: 20090413, end: 20090613
  9. ROCALTROL [Concomitant]
     Dosage: .5 UG, UNK
     Route: 048
     Dates: start: 20090614, end: 20090730
  10. MICARDIS [Concomitant]
     Dosage: 40 MG, UNK
     Route: 048
  11. PROTECADIN [Concomitant]
     Dosage: 10 MG, UNK
     Route: 048
  12. YODEL [Concomitant]
     Dosage: 80 MG, UNK
     Route: 048
     Dates: start: 20090417
  13. VASOLAN                            /00014302/ [Concomitant]
     Dosage: 80 MG, UNK
     Route: 048
     Dates: start: 20090529
  14. MUCOSTA [Concomitant]
     Dosage: 300 MG, UNK
     Route: 048
     Dates: start: 20090608

REACTIONS (3)
  - CHEST PAIN [None]
  - HEPATIC FUNCTION ABNORMAL [None]
  - PYREXIA [None]
